FAERS Safety Report 23448491 (Version 2)
Quarter: 2025Q1

REPORT INFORMATION
  Report Type: Report from Study
  Country: CO (occurrence: CO)
  Receive Date: 20240127
  Receipt Date: 20250121
  Transmission Date: 20250409
  Serious: Yes (Hospitalization, Other)
  Sender: UCB
  Company Number: CO-UCBSA-2023054811

PATIENT
  Age: 70 Year
  Sex: Female
  Weight: 62 kg

DRUGS (9)
  1. CERTOLIZUMAB PEGOL [Suspect]
     Active Substance: CERTOLIZUMAB PEGOL
     Indication: Rheumatoid arthritis
     Dosage: 400 MILLIGRAM, EV 30 DAYS
     Route: 058
     Dates: start: 20220626, end: 20240129
  2. CERTOLIZUMAB PEGOL [Suspect]
     Active Substance: CERTOLIZUMAB PEGOL
     Dosage: 400 MILLIGRAM, EV 30 DAYS
     Route: 058
     Dates: start: 20240731, end: 20240731
  3. METHOTREXATE SODIUM [Concomitant]
     Active Substance: METHOTREXATE SODIUM
     Indication: Rheumatoid arthritis
  4. LEVOTHYROXINE [Concomitant]
     Active Substance: LEVOTHYROXINE
     Indication: Hypothyroidism
  5. LEFLUNOMIDE [Concomitant]
     Active Substance: LEFLUNOMIDE
     Indication: Rheumatoid arthritis
  6. PREDNISOLONE [Concomitant]
     Active Substance: PREDNISOLONE
     Indication: Product used for unknown indication
  7. FOLIC ACID [Concomitant]
     Active Substance: FOLIC ACID
     Indication: Product used for unknown indication
  8. NAPROXEN [Concomitant]
     Active Substance: NAPROXEN
     Indication: Product used for unknown indication
  9. ACETAMINOPHEN [Concomitant]
     Active Substance: ACETAMINOPHEN
     Indication: Product used for unknown indication

REACTIONS (7)
  - Hip surgery [Recovered/Resolved with Sequelae]
  - Postoperative wound infection [Unknown]
  - Wound secretion [Recovering/Resolving]
  - Incorrect dose administered [Unknown]
  - Product prescribing issue [Unknown]
  - Therapy interrupted [Unknown]
  - Off label use [Unknown]

NARRATIVE: CASE EVENT DATE: 20220626
